FAERS Safety Report 11289769 (Version 2)
Quarter: 2015Q3

REPORT INFORMATION
  Report Type: Other
  Country: None (occurrence: BY)
  Receive Date: 20150721
  Receipt Date: 20150805
  Transmission Date: 20151125
  Serious: Yes (Hospitalization)
  Sender: FDA-Public Use
  Company Number: BY-MERCK KGAA-1040633

PATIENT

DRUGS (1)
  1. NOVOTHYROX [Suspect]
     Active Substance: LEVOTHYROXINE SODIUM

REACTIONS (2)
  - Encephalomyelitis [None]
  - Generalised tonic-clonic seizure [None]
